FAERS Safety Report 6580183-8 (Version None)
Quarter: 2010Q1

REPORT INFORMATION
  Report Type: 
  Country: None (occurrence: None)
  Receive Date: 20100212
  Receipt Date: 20100205
  Transmission Date: 20100710
  Serious: Yes (Life-Threatening, Hospitalization, Other)
  Sender: FDA-Public Use
  Company Number: US-BAYER-201011389BCC

PATIENT
  Age: 44 Year
  Sex: Male
  Weight: 98 kg

DRUGS (2)
  1. PHILLIPS' MILK OF MAGNESIA CHERRY [Suspect]
     Indication: ABDOMINAL DISCOMFORT
     Route: 048
     Dates: start: 20100130
  2. IMODIUM [Concomitant]
     Indication: ABDOMINAL DISCOMFORT
     Route: 065

REACTIONS (4)
  - ABDOMINAL PAIN UPPER [None]
  - DIARRHOEA [None]
  - HEPATITIS A [None]
  - UNEVALUABLE EVENT [None]
